FAERS Safety Report 10616371 (Version 1)
Quarter: 2014Q4

REPORT INFORMATION
  Report Type: Spontaneous
  Country: US (occurrence: None)
  Receive Date: 20141125
  Receipt Date: 20141125
  Transmission Date: 20150529
  Serious: Yes (Disabling)
  Sender: FDA-Public Use
  Company Number: None

PATIENT
  Age: 7 Year
  Sex: Female
  Weight: 28.12 kg

DRUGS (3)
  1. ETHOSUXIMIDE. [Concomitant]
     Active Substance: ETHOSUXIMIDE
  2. MELATONIN [Concomitant]
     Active Substance: MELATONIN
  3. ETHOSUXIMIDE. [Suspect]
     Active Substance: ETHOSUXIMIDE
     Indication: PETIT MAL EPILEPSY
     Route: 048
     Dates: start: 20130227

REACTIONS (5)
  - Disturbance in attention [None]
  - Reaction to drug excipients [None]
  - Irritability [None]
  - Sleep disorder [None]
  - Abnormal behaviour [None]

NARRATIVE: CASE EVENT DATE: 20130227
